FAERS Safety Report 24395829 (Version 1)
Quarter: 2024Q4

REPORT INFORMATION
  Report Type: Spontaneous
  Country: FR (occurrence: FR)
  Receive Date: 20241004
  Receipt Date: 20241004
  Transmission Date: 20250114
  Serious: Yes (Hospitalization)
  Sender: CHEPLAPHARM
  Company Number: None

PATIENT
  Age: 90 Year
  Sex: Female
  Weight: 43 kg

DRUGS (17)
  1. CLONAZEPAM [Suspect]
     Active Substance: CLONAZEPAM
     Route: 048
     Dates: start: 20240424, end: 20240424
  2. ETIFOXINE [Suspect]
     Active Substance: ETIFOXINE
     Route: 048
     Dates: start: 20240424, end: 20240424
  3. VALPROATE SODIUM [Suspect]
     Active Substance: VALPROATE SODIUM
     Route: 048
     Dates: start: 20240424, end: 20240424
  4. APIXABAN [Concomitant]
     Active Substance: APIXABAN
     Dosage: 2.5 MG 1CP MORNING AND EVENING?DAILY DOSE: 2 DOSAGE FORM
  5. BISOPROLOL [Concomitant]
     Active Substance: BISOPROLOL\BISOPROLOL FUMARATE
     Dosage: 2.5 MG 1 TABLET IN THE MORNING?DAILY DOSE: 1 DOSAGE FORM
  6. ESOMEPRAZOLE [Concomitant]
     Active Substance: ESOMEPRAZOLE
     Dosage: 20 MG 1 TABLET IN THE EVENING?DAILY DOSE: 1 DOSAGE FORM
  7. PAROXETINE [Concomitant]
     Active Substance: PAROXETINE
     Dosage: 20 MG 1 HALF TABLET IN THE MORNING UNTIL 11/03?DAILY DOSE: 1.5 DOSAGE FORM
     Dates: end: 20240311
  8. MINERAL OIL [Concomitant]
     Active Substance: MINERAL OIL
     Dosage: GEL 1 POT A DAY
  9. CHOLECALCIFEROL [Concomitant]
     Active Substance: CHOLECALCIFEROL
     Dosage: 50,000 IU 1 AMPOULE ON 01/03, 15/03, 01/04, 15/04, THEN EVERY MONTH
     Dates: start: 20240301
  10. CHOLECALCIFEROL [Concomitant]
     Active Substance: CHOLECALCIFEROL
     Dosage: 50,000 IU 1 AMPOULE ON 01/03, 15/03, 01/04, 15/04, THEN EVERY MONTH
     Dates: start: 20240315
  11. CHOLECALCIFEROL [Concomitant]
     Active Substance: CHOLECALCIFEROL
     Dosage: 50,000 IU 1 AMPOULE ON 01/03, 15/03, 01/04, 15/04, THEN EVERY MONTH
     Dates: start: 20240401
  12. CHOLECALCIFEROL [Concomitant]
     Active Substance: CHOLECALCIFEROL
     Dosage: 50,000 IU 1 AMPOULE ON 01/03, 15/03, 01/04, 15/04, THEN EVERY MONTH
     Dates: start: 20240415
  13. CHOLECALCIFEROL [Concomitant]
     Active Substance: CHOLECALCIFEROL
     Dosage: 50,000 IU 1 AMPOULE ON 01/03, 15/03, 01/04, 15/04, THEN EVERY MONTH
  14. ACETAMINOPHEN [Concomitant]
     Active Substance: ACETAMINOPHEN
     Dosage: 500 MG 1 GEL EVERY 8 HOURS IF PAIN, MAX 3 PER DAY
  15. LEVOTHYROXINE [Concomitant]
     Active Substance: LEVOTHYROXINE
     Dosage: 1 TABLET IN THE MORNING ?DAILY DOSE: 1 DOSAGE FORM
  16. FUROSEMIDE [Concomitant]
     Active Substance: FUROSEMIDE
     Dosage: 20MG 1 TABLET IN THE MORNING?DAILY DOSE: 1 DOSAGE FORM
  17. MIRTAZAPINE [Concomitant]
     Active Substance: MIRTAZAPINE
     Dosage: MIRTAZAPINE 15

REACTIONS (10)
  - Renal impairment [Recovered/Resolved]
  - Incoherent [Recovered/Resolved]
  - Fall [Recovered/Resolved]
  - Head injury [Unknown]
  - Haematoma [Unknown]
  - Neck pain [Unknown]
  - Acute kidney injury [Recovering/Resolving]
  - Rhabdomyolysis [Unknown]
  - Hyperkalaemia [Recovered/Resolved]
  - Wrong product administered [Recovered/Resolved]

NARRATIVE: CASE EVENT DATE: 20240424
